FAERS Safety Report 16916727 (Version 1)
Quarter: 2019Q4

REPORT INFORMATION
  Report Type: Spontaneous
  Country: US (occurrence: US)
  Receive Date: 20191015
  Receipt Date: 20191015
  Transmission Date: 20200122
  Serious: Yes (Other)
  Sender: FDA-Public Use
  Company Number: US-009507513-1910USA007255

PATIENT
  Age: 21 Year
  Sex: Female
  Weight: 64.85 kg

DRUGS (2)
  1. XANAX [Concomitant]
     Active Substance: ALPRAZOLAM
  2. NEXPLANON [Suspect]
     Active Substance: ETONOGESTREL
     Indication: CONTRACEPTION
     Dosage: IMPLANT IN LEFT ARM, 3 YEAR IMPLANT
     Route: 059
     Dates: start: 20190522

REACTIONS (4)
  - Seborrhoea [Not Recovered/Not Resolved]
  - Device dislocation [Not Recovered/Not Resolved]
  - Mood swings [Not Recovered/Not Resolved]
  - Hunger [Not Recovered/Not Resolved]

NARRATIVE: CASE EVENT DATE: 2019
